FAERS Safety Report 4551300-6 (Version None)
Quarter: 2005Q1

REPORT INFORMATION
  Report Type: 
  Country: None (occurrence: None)
  Receive Date: 20050110
  Receipt Date: 20041227
  Transmission Date: 20050727
  Serious: Yes (Other)
  Sender: FDA-Public Use
  Company Number: 211401

PATIENT
  Age: 71 Year
  Sex: Male

DRUGS (2)
  1. RITUXAN [Suspect]
     Indication: NON-HODGKIN'S LYMPHOMA
     Dosage: 375 MG/M2, QD, INTRAVNEOUS
     Route: 042
     Dates: start: 20040513, end: 20040920
  2. VINCRISTINE [Concomitant]

REACTIONS (1)
  - DEAFNESS [None]
